FAERS Safety Report 9547646 (Version 1)
Quarter: 2013Q3

REPORT INFORMATION
  Report Type: Spontaneous
  Country: US (occurrence: None)
  Receive Date: 20130923
  Receipt Date: 20130923
  Transmission Date: 20140515
  Serious: Yes (Life-Threatening, Hospitalization, Disabling, Other)
  Sender: FDA-Public Use
  Company Number: None

PATIENT
  Age: 74 Year
  Sex: Male
  Weight: 105.69 kg

DRUGS (1)
  1. DEPO MEDROL [Suspect]
     Indication: SPINAL PAIN
     Dates: start: 20130723, end: 20130723

REACTIONS (11)
  - Injection site pain [None]
  - Abasia [None]
  - Bedridden [None]
  - Screaming [None]
  - Injection site infection [None]
  - Intervertebral discitis [None]
  - Osteomyelitis [None]
  - Pain [None]
  - Mobility decreased [None]
  - Cerebrovascular accident [None]
  - Product compounding quality issue [None]
